FAERS Safety Report 7339097-8 (Version None)
Quarter: 2011Q1

REPORT INFORMATION
  Report Type: 
  Country: None (occurrence: None)
  Receive Date: 20110308
  Receipt Date: 20101201
  Transmission Date: 20110831
  Serious: Yes (Other)
  Sender: FDA-Public Use
  Company Number: US-BAYER-201030290NA

PATIENT
  Sex: Male
  Weight: 73.636 kg

DRUGS (12)
  1. OMNISCAN [Suspect]
     Indication: NUCLEAR MAGNETIC RESONANCE IMAGING BRAIN
     Dosage: 20 ML (DAILY DOSE), ONCE, INTRAVENOUS
     Route: 042
     Dates: start: 20020812, end: 20020812
  2. LABETALOL HCL [Concomitant]
  3. NIFEDIPINE [Concomitant]
  4. EPOETIN NOS [Concomitant]
  5. DIVALPROEX SODIUM [Concomitant]
  6. ACCUPRIL [Concomitant]
  7. MAGNEVIST [Suspect]
     Indication: NUCLEAR MAGNETIC RESONANCE IMAGING
     Dosage: 20 ML (DAILY DOSE), , INTRAVENOUS
     Route: 042
     Dates: start: 20030507, end: 20030507
  8. PHENYTOIN [Concomitant]
  9. HYDRALAZINE [Concomitant]
  10. SODIUM NITROPRUSSIDE [Concomitant]
  11. NORVASC [Concomitant]
  12. CLONIDINE [Concomitant]

REACTIONS (11)
  - OEDEMA [None]
  - HYPERKERATOSIS [None]
  - PAIN [None]
  - MUSCULOSKELETAL PAIN [None]
  - PAIN IN EXTREMITY [None]
  - BONE PAIN [None]
  - SKIN HYPERPIGMENTATION [None]
  - NEPHROGENIC SYSTEMIC FIBROSIS [None]
  - ARTHRALGIA [None]
  - HYPOAESTHESIA [None]
  - DRY SKIN [None]
